FAERS Safety Report 25395269 (Version 1)
Quarter: 2025Q2

REPORT INFORMATION
  Report Type: Spontaneous
  Country: GB (occurrence: GB)
  Receive Date: 20250604
  Receipt Date: 20250604
  Transmission Date: 20250717
  Serious: Yes (Other)
  Sender: AUROBINDO
  Company Number: GB-MHRA-TPP26306463C11455705YC1747667613243

PATIENT
  Age: 75 Year
  Sex: Male
  Weight: 114 kg

DRUGS (9)
  1. METFORMIN [Suspect]
     Active Substance: METFORMIN HYDROCHLORIDE
     Indication: Ill-defined disorder
     Dosage: 500 MILLIGRAM, ONCE A DAY (500MG. START WITH ONE DAILY - SLOWLY INCREASING WEEKLY...)
     Route: 065
     Dates: start: 20250205
  2. ASPIRIN [Concomitant]
     Active Substance: ASPIRIN
     Indication: Ill-defined disorder
     Route: 065
     Dates: start: 20191213
  3. OMEPRAZOLE [Concomitant]
     Active Substance: OMEPRAZOLE
     Indication: Ill-defined disorder
     Route: 065
     Dates: start: 20191213
  4. ACETAMINOPHEN [Concomitant]
     Active Substance: ACETAMINOPHEN
     Indication: Ill-defined disorder
     Dosage: 2 DOSAGE FORM, FOUR TIMES/DAY (TAKE 2 TABLETS FOUR TIMES A DAY)
     Route: 065
     Dates: start: 20191213
  5. RAMIPRIL [Concomitant]
     Active Substance: RAMIPRIL
     Indication: Ill-defined disorder
     Route: 065
     Dates: start: 20191213
  6. TRAMADOL [Concomitant]
     Active Substance: TRAMADOL
     Indication: Ill-defined disorder
     Dosage: 2 DOSAGE FORM, TWO TIMES A DAY (2 TWICE DAILY IN ADDITION TO SLOW RELEASE TRAMA...)
     Route: 065
     Dates: start: 20211207
  7. ROSUVASTATIN [Concomitant]
     Active Substance: ROSUVASTATIN
     Indication: Ill-defined disorder
     Route: 065
     Dates: start: 20230313
  8. LERCANIDIPINE HYDROCHLORIDE [Concomitant]
     Active Substance: LERCANIDIPINE HYDROCHLORIDE
     Indication: Ill-defined disorder
     Route: 065
     Dates: start: 20240522
  9. FEXOFENADINE [Concomitant]
     Active Substance: FEXOFENADINE HYDROCHLORIDE
     Indication: Ill-defined disorder
     Route: 065
     Dates: start: 20240806

REACTIONS (3)
  - Muscle spasms [Recovered/Resolved]
  - Tremor [Recovered/Resolved]
  - Paraesthesia [Recovered/Resolved]
